FAERS Safety Report 5750926-1 (Version None)
Quarter: 2008Q2

REPORT INFORMATION
  Report Type: 
  Country: None (occurrence: None)
  Receive Date: 20080528
  Receipt Date: 20080523
  Transmission Date: 20081010
  Serious: Yes (Other)
  Sender: FDA-Public Use
  Company Number: AU-MERCK-0709AUS00095

PATIENT
  Age: 78 Year
  Sex: Male

DRUGS (3)
  1. ZOCOR [Suspect]
     Indication: BLOOD CHOLESTEROL INCREASED
     Route: 048
     Dates: start: 20070601, end: 20070601
  2. ZOCOR [Suspect]
     Route: 048
     Dates: start: 20030101
  3. ZOCOR [Suspect]
     Route: 048
     Dates: start: 20070801, end: 20070801

REACTIONS (3)
  - CARDIAC DISORDER [None]
  - MYALGIA [None]
  - THERAPY REGIMEN CHANGED [None]
